FAERS Safety Report 5446906-6 (Version None)
Quarter: 2007Q3

REPORT INFORMATION
  Report Type: 
  Country: None (occurrence: None)
  Receive Date: 20070813
  Receipt Date: 20060814
  Transmission Date: 20080115
  Serious: Yes (Other)
  Sender: FDA-Public Use
  Company Number: 2006-146795-NL

PATIENT
  Age: 77 Year
  Sex: Female
  Weight: 50.8 kg

DRUGS (3)
  1. REMERON [Suspect]
     Indication: ELEVATED MOOD
     Dosage: 15 MG QD ORAL, EVERY MORNING
     Route: 048
     Dates: end: 20060802
  2. MATULANE [Suspect]
     Indication: HODGKIN'S DISEASE
     Dosage: 50 MG ONCE ORAL
     Route: 048
     Dates: start: 20060727, end: 20060727
  3. MATULANE [Suspect]
     Indication: HODGKIN'S DISEASE
     Dosage: 50 MG TID ORAL
     Route: 048
     Dates: end: 20060820

REACTIONS (6)
  - AGITATION [None]
  - DRUG INTERACTION [None]
  - HAEMOGLOBIN DECREASED [None]
  - RED BLOOD CELL COUNT DECREASED [None]
  - STOMATITIS [None]
  - WHITE BLOOD CELL COUNT DECREASED [None]
